FAERS Safety Report 6077053-0 (Version None)
Quarter: 2009Q1

REPORT INFORMATION
  Report Type: 
  Country: None (occurrence: None)
  Receive Date: 20090213
  Receipt Date: 20090205
  Transmission Date: 20090719
  Serious: Yes (Death, Hospitalization)
  Sender: FDA-Public Use
  Company Number: NSADSS2002040890

PATIENT
  Sex: Female
  Weight: 49.44 kg

DRUGS (17)
  1. REMICADE [Suspect]
     Route: 041
  2. REMICADE [Suspect]
     Indication: CROHN'S DISEASE
     Route: 041
  3. METRONIDAZOLE [Concomitant]
  4. CIPRO [Concomitant]
  5. PREDNISONE [Concomitant]
  6. ACETAMINOPHEN AND HYDROCODONE BITARTRATE [Concomitant]
  7. GUAIFENESIN W/PSEUDOEPHEDRINE [Concomitant]
  8. WARFARIN SODIUM [Concomitant]
  9. LOTEMAX [Concomitant]
  10. PREMPRO [Concomitant]
  11. ASACOL [Concomitant]
  12. ZOLOFT [Concomitant]
  13. ACIPHEX [Concomitant]
  14. AVELOX [Concomitant]
  15. CLARINEX [Concomitant]
  16. AMBIEN [Concomitant]
  17. ENTOCORT EC [Concomitant]

REACTIONS (8)
  - ACUTE RESPIRATORY DISTRESS SYNDROME [None]
  - CARDIAC ARREST [None]
  - COMA HEPATIC [None]
  - DISSEMINATED INTRAVASCULAR COAGULATION [None]
  - HISTOPLASMOSIS [None]
  - HYPOTENSION [None]
  - MULTI-ORGAN FAILURE [None]
  - STAPHYLOCOCCAL BACTERAEMIA [None]
